FAERS Safety Report 7267733-3 (Version None)
Quarter: 2011Q1

REPORT INFORMATION
  Report Type: 
  Country: None (occurrence: None)
  Receive Date: 20110201
  Receipt Date: 20110121
  Transmission Date: 20110831
  Serious: Yes (Life-Threatening)
  Sender: FDA-Public Use
  Company Number: FR-ROCHE-755137

PATIENT
  Age: 55 Year
  Sex: Female

DRUGS (2)
  1. TAXOL [Concomitant]
     Dosage: THERAPY IN COMBINATION WITH AVASTIN FOR SIX MONTHS.
  2. AVASTIN [Suspect]
     Route: 042
     Dates: end: 20101001

REACTIONS (1)
  - CARDIAC ARREST [None]
